FAERS Safety Report 9594900 (Version 2)
Quarter: 2013Q4

REPORT INFORMATION
  Report Type: Report from Study
  Country: MX (occurrence: MX)
  Receive Date: 20131004
  Receipt Date: 20131004
  Transmission Date: 20140711
  Serious: Yes (Hospitalization, Other)
  Sender: FDA-Public Use
  Company Number: PHHY2011MX110497

PATIENT
  Age: 64 Year
  Sex: Female

DRUGS (3)
  1. DIOVAN [Suspect]
     Indication: HYPERTENSION
     Dosage: 2 DF(80MG), DAILY
     Route: 048
     Dates: start: 200712
  2. ACETYLSALICYLIC ACID [Concomitant]
     Indication: ANTIPLATELET THERAPY
     Dosage: UKN, QD
     Dates: start: 200812
  3. BEZAFIBRATE [Concomitant]
     Dosage: UNK

REACTIONS (7)
  - Haemorrhage [Recovered/Resolved]
  - Uterine polyp [Recovered/Resolved]
  - Procedural complication [Recovering/Resolving]
  - Hyperplasia [Unknown]
  - Blood triglycerides increased [Recovered/Resolved]
  - Emotional disorder [Unknown]
  - Metabolic disorder [Unknown]
